FAERS Safety Report 8820862 (Version 1)
Quarter: 2012Q4

REPORT INFORMATION
  Report Type: Report from Study
  Country: CA (occurrence: CA)
  Receive Date: 20121002
  Receipt Date: 20121002
  Transmission Date: 20130627
  Serious: Yes (Other)
  Sender: FDA-Public Use
  Company Number: CA-ROCHE-1138875

PATIENT
  Age: 77 Year
  Sex: Male
  Weight: 70.82 kg

DRUGS (11)
  1. ROACTEMRA [Suspect]
     Indication: RHEUMATOID ARTHRITIS
     Route: 042
     Dates: start: 20111209, end: 20120321
  2. METHOTREXATE [Concomitant]
     Route: 058
  3. PREDNISONE [Concomitant]
     Route: 065
  4. RAMIPRIL [Concomitant]
  5. ZOCOR [Concomitant]
  6. WARFARIN [Concomitant]
     Route: 065
  7. FOLIC ACID [Concomitant]
  8. BISOPROLOL [Concomitant]
  9. LASIX [Concomitant]
  10. SODIUM POLYSTYRENE SULFONATE [Concomitant]
     Indication: BLOOD POTASSIUM DECREASED
  11. ASPIRIN [Concomitant]
     Route: 065

REACTIONS (1)
  - Atrial fibrillation [Not Recovered/Not Resolved]
